FAERS Safety Report 8763317 (Version 1)
Quarter: 2012Q4

REPORT INFORMATION
  Report Type: 
  Country: US (occurrence: US)
  Receive Date: 20120831
  Receipt Date: 20120831
  Transmission Date: 20130627
  Serious: No
  Sender: FDA-Public Use
  Company Number: US-PFIZER INC-2012211889

PATIENT
  Sex: Female
  Weight: 99.77 kg

DRUGS (8)
  1. NORVASC [Suspect]
     Indication: HYPERTENSION
     Dosage: 5 mg, 2x/day
  2. SIMVASTATIN [Suspect]
     Indication: BLOOD CHOLESTEROL INCREASED
     Dosage: 40 mg, daily
  3. SIMVASTATIN [Suspect]
     Dosage: 20 mg, 1x/day
  4. CAPTOPRIL [Suspect]
     Dosage: 50 mg, 3x/day
     Dates: end: 20120727
  5. PLAVIX [Concomitant]
     Dosage: 75 mg, daily
  6. METFORMIN [Concomitant]
     Dosage: 1000 mg, 2x/day
  7. ACETYLSALICYLIC ACID [Concomitant]
     Dosage: 81 mg, daily
  8. ACETYLSALICYLIC ACID [Concomitant]
     Dosage: 325 mg, 1x/day
     Dates: start: 20120730

REACTIONS (1)
  - Weight decreased [Unknown]
